FAERS Safety Report 16024102 (Version 1)
Quarter: 2019Q1

REPORT INFORMATION
  Report Type: Spontaneous
  Country: US (occurrence: US)
  Receive Date: 20190301
  Receipt Date: 20190301
  Transmission Date: 20190418
  Serious: No
  Sender: FDA-Public Use
  Company Number: US-ASTRAZENECA-2019SE21167

PATIENT
  Age: 368 Month
  Sex: Female
  Weight: 68 kg

DRUGS (2)
  1. BYDUREON [Suspect]
     Active Substance: EXENATIDE
     Indication: POLYCYSTIC OVARIES
     Route: 058
     Dates: start: 20190118, end: 20190201
  2. IRON [Concomitant]
     Active Substance: IRON

REACTIONS (6)
  - Injection site mass [Not Recovered/Not Resolved]
  - Product use in unapproved indication [Unknown]
  - Injection site pruritus [Not Recovered/Not Resolved]
  - Injection site erythema [Not Recovered/Not Resolved]
  - Injection site warmth [Not Recovered/Not Resolved]
  - Off label use [Unknown]

NARRATIVE: CASE EVENT DATE: 201901
